FAERS Safety Report 6806669-6 (Version None)
Quarter: 2010Q2

REPORT INFORMATION
  Report Type: 
  Country: None (occurrence: None)
  Receive Date: 20100629
  Receipt Date: 20080417
  Transmission Date: 20101027
  Serious: No
  Sender: FDA-Public Use
  Company Number: US-PFIZER INC-2008033976

PATIENT
  Sex: Female
  Weight: 50 kg

DRUGS (3)
  1. XANAX [Suspect]
     Indication: ANXIETY
     Dates: start: 20071001
  2. TRAMADOL HCL [Concomitant]
  3. EFFEXOR [Concomitant]

REACTIONS (3)
  - RESPIRATORY RATE INCREASED [None]
  - TREMOR [None]
  - WEIGHT DECREASED [None]
